FAERS Safety Report 16225094 (Version 1)
Quarter: 2019Q2

REPORT INFORMATION
  Report Type: Spontaneous
  Country: FR (occurrence: FR)
  Receive Date: 20190422
  Receipt Date: 20190422
  Transmission Date: 20190711
  Serious: Yes (Death)
  Sender: FDA-Public Use
  Company Number: FR-MYLANLABS-2019M1037428

PATIENT
  Age: 79 Year
  Sex: Male
  Weight: 75 kg

DRUGS (4)
  1. VORICONAZOLE. [Suspect]
     Active Substance: VORICONAZOLE
     Indication: OSTEITIS
     Dosage: 400 MILLIGRAM, QD
     Route: 048
     Dates: start: 20180724, end: 20180904
  2. BACTRIM [Suspect]
     Active Substance: SULFAMETHOXAZOLE\TRIMETHOPRIM
     Indication: OSTEITIS
     Dosage: 2400 MILLIGRAM, QD
     Route: 048
     Dates: start: 20180724, end: 20180924
  3. INVANZ [Concomitant]
     Active Substance: ERTAPENEM SODIUM
     Indication: OSTEITIS
     Dosage: 1 GRAM, QD
     Route: 058
     Dates: start: 20180724, end: 20180807
  4. TAZOCILLINE [Concomitant]
     Active Substance: PIPERACILLIN SODIUM\TAZOBACTAM SODIUM
     Indication: KLEBSIELLA SEPSIS
     Dosage: UNK
     Route: 041
     Dates: start: 20180831, end: 20180907

REACTIONS (1)
  - Lung disorder [Fatal]

NARRATIVE: CASE EVENT DATE: 20180826
